FAERS Safety Report 9587038 (Version 3)
Quarter: 2014Q1

REPORT INFORMATION
  Report Type: Spontaneous
  Country: GB (occurrence: GB)
  Receive Date: 20131003
  Receipt Date: 20140206
  Transmission Date: 20141002
  Serious: Yes (Life-Threatening, Hospitalization, Other)
  Sender: FDA-Public Use
  Company Number: GB-TAKEDA-TPA2013A00346

PATIENT
  Sex: 0

DRUGS (14)
  1. LANSOPRAZOLE [Suspect]
     Dosage: IN THE MORNING 30 MG, QD
     Route: 048
     Dates: start: 20110401, end: 20110408
  2. DOXYCYCLINE MONOHYDRATE [Suspect]
     Dosage: 100 MG, QD
     Route: 048
     Dates: end: 20110502
  3. CLARITHROMYCIN [Suspect]
     Dosage: 500 MG, BID
     Route: 048
     Dates: end: 20111102
  4. TRIMETHOPRIM [Suspect]
     Indication: URINARY TRACT INFECTION
     Dosage: 200 MG, BID
     Route: 048
     Dates: start: 20110317, end: 20110321
  5. TRIMETHOPRIM [Suspect]
     Dosage: 200 MG, BID
     Route: 048
     Dates: start: 20110416, end: 20110423
  6. CIPROFLOXACIN [Suspect]
     Dosage: 500 MG, BID
     Route: 048
     Dates: start: 20110401, end: 20110408
  7. BUMETANIDE [Concomitant]
     Dosage: IN THE MORNING 2 MG, QD
     Route: 048
  8. AMLODIPINE [Concomitant]
     Dosage: EVERY MORNING 10 MG, QD
     Route: 048
  9. ASPIRIN [Concomitant]
     Dosage: EVERY MORNING 75 MG, QD
     Route: 048
  10. ATORVASTATIN [Concomitant]
     Dosage: AT NIGHT 80 MG, QD
     Route: 048
  11. BENDROFLUMETHIAZIDE [Concomitant]
     Dosage: IN THE MORNING 2.5 MG, QD
     Route: 048
  12. IRBESARTAN [Concomitant]
     Dosage: IN THE MORNING 150, QD
     Route: 048
  13. PARACETAMOL [Concomitant]
     Dosage: 1 (UNITS UNSPECIFIED) 4 TIMES A DAY AS NECESSARY
  14. SALBUTAMOL [Concomitant]
     Dosage: 2-4 PUFFS AS REQUIRED 100 ?G, PRN
     Route: 050

REACTIONS (2)
  - Clostridium difficile infection [Recovered/Resolved]
  - Diarrhoea [Unknown]
